FAERS Safety Report 8125006-0 (Version None)
Quarter: 2012Q1

REPORT INFORMATION
  Report Type: 
  Country: None (occurrence: None)
  Receive Date: 20120209
  Receipt Date: 20120206
  Transmission Date: 20120608
  Serious: Yes (Other)
  Sender: FDA-Public Use
  Company Number: US-ROCHE-1024033

PATIENT
  Sex: Male

DRUGS (1)
  1. ZELBORAF [Suspect]
     Indication: PRODUCT USED FOR UNKNOWN INDICATION
     Route: 065

REACTIONS (7)
  - ALOPECIA [None]
  - PRURITUS [None]
  - SUNBURN [None]
  - HORDEOLUM [None]
  - NAUSEA [None]
  - ARTHRALGIA [None]
  - FATIGUE [None]
